FAERS Safety Report 19004604 (Version 1)
Quarter: 2021Q1

REPORT INFORMATION
  Report Type: Spontaneous
  Country: US (occurrence: US)
  Receive Date: 20210313
  Receipt Date: 20210313
  Transmission Date: 20210420
  Serious: No
  Sender: FDA-Public Use
  Company Number: US-SA-2021SA083480

PATIENT
  Age: 68 Year
  Sex: Female
  Weight: 75.74 kg

DRUGS (3)
  1. AUBAGIO [Suspect]
     Active Substance: TERIFLUNOMIDE
     Indication: MULTIPLE SCLEROSIS
     Dosage: 14 MG, QD
     Route: 048
     Dates: start: 2017
  2. VALSARTAN. [Concomitant]
     Active Substance: VALSARTAN
  3. TRIAMCINOLONE ACETONIDE. [Concomitant]
     Active Substance: TRIAMCINOLONE ACETONIDE

REACTIONS (9)
  - Pruritus [Unknown]
  - Skin exfoliation [Unknown]
  - Rash erythematous [Unknown]
  - Depression [Unknown]
  - Hair texture abnormal [Unknown]
  - Skin hypertrophy [Unknown]
  - Alopecia [Unknown]
  - Rash pruritic [Unknown]
  - Foot operation [Unknown]

NARRATIVE: CASE EVENT DATE: 2020
